FAERS Safety Report 23020650 (Version 2)
Quarter: 2024Q3

REPORT INFORMATION
  Report Type: Report from Study
  Country: US (occurrence: US)
  Receive Date: 20231003
  Receipt Date: 20240926
  Transmission Date: 20241016
  Serious: Yes (Other)
  Sender: AURINIA PHARMACEUTICALS
  Company Number: US-OTSUKA PHARMACEUTICAL NETHERLANDS B.V.-AUR-004306

PATIENT
  Age: 36 Year
  Sex: Female

DRUGS (4)
  1. LUPKYNIS [Suspect]
     Active Substance: VOCLOSPORIN
     Indication: Lupus nephritis
     Dosage: 7.9 MILLIGRAM, BID
     Route: 048
     Dates: start: 20211021
  2. LUPKYNIS [Suspect]
     Active Substance: VOCLOSPORIN
     Dosage: 7.9 MILLIGRAM, BID
     Route: 048
  3. CELLCEPT [Concomitant]
     Active Substance: MYCOPHENOLATE MOFETIL
     Indication: Product used for unknown indication
     Dosage: 1500 MILLIGRAM, BID
  4. BENLYSTA [Concomitant]
     Active Substance: BELIMUMAB
     Indication: Product used for unknown indication
     Dosage: UNK

REACTIONS (11)
  - Proteinuria [Unknown]
  - Blood creatinine increased [Unknown]
  - Immunodeficiency [Unknown]
  - Urine protein/creatinine ratio increased [Unknown]
  - Glomerular filtration rate decreased [Unknown]
  - Acute kidney injury [Unknown]
  - Double stranded DNA antibody positive [Unknown]
  - Chills [Unknown]
  - Nausea [Unknown]
  - Vomiting [Unknown]
  - COVID-19 [Unknown]

NARRATIVE: CASE EVENT DATE: 20230602
